FAERS Safety Report 10226615 (Version 2)
Quarter: 2014Q2

REPORT INFORMATION
  Report Type: Spontaneous
  Country: US (occurrence: US)
  Receive Date: 20140609
  Receipt Date: 20140609
  Transmission Date: 20141212
  Serious: No
  Sender: FDA-Public Use
  Company Number: US-AMGEN INC.-USASP2013090592

PATIENT
  Age: 73 Year
  Sex: Male
  Weight: 83.45 kg

DRUGS (1)
  1. PROCRIT [Suspect]
     Indication: ANAEMIA
     Dosage: 40000 U/ML, UNK
     Route: 065

REACTIONS (1)
  - Haemoglobin abnormal [Not Recovered/Not Resolved]
